FAERS Safety Report 15886278 (Version 1)
Quarter: 2019Q1

REPORT INFORMATION
  Report Type: Report from Study
  Country: US (occurrence: US)
  Receive Date: 20190129
  Receipt Date: 20190129
  Transmission Date: 20190417
  Serious: No
  Sender: FDA-Public Use
  Company Number: PHEH2019US004045

PATIENT
  Sex: Female

DRUGS (1)
  1. KISQALI [Suspect]
     Active Substance: RIBOCICLIB
     Indication: BONE NEOPLASM
     Dosage: 600 MG, QD
     Route: 048
     Dates: start: 201901

REACTIONS (2)
  - Rash generalised [Recovering/Resolving]
  - Pruritus [Recovering/Resolving]
